FAERS Safety Report 6491964-3 (Version None)
Quarter: 2009Q4

REPORT INFORMATION
  Report Type: 
  Country: None (occurrence: None)
  Receive Date: 20091208
  Receipt Date: 20091124
  Transmission Date: 20100525
  Serious: Yes (Death, Other)
  Sender: FDA-Public Use
  Company Number: CLOF-1000377

PATIENT
  Age: 77 Year
  Sex: Female

DRUGS (7)
  1. EVOLTRA (CLOFARABINE) SOLUTION FOR INFUSION, MG/M2 [Suspect]
     Indication: ACUTE MYELOID LEUKAEMIA
     Dosage: 20 MG/M2, QDX5, INTRAVENOUS; 20 MG/M2, QDX5, INTRAVENOUS
     Route: 042
     Dates: start: 20061016, end: 20061020
  2. EVOLTRA (CLOFARABINE) SOLUTION FOR INFUSION, MG/M2 [Suspect]
     Indication: ACUTE MYELOID LEUKAEMIA
     Dosage: 20 MG/M2, QDX5, INTRAVENOUS; 20 MG/M2, QDX5, INTRAVENOUS
     Route: 042
     Dates: start: 20061204, end: 20061208
  3. DAUNORUBICIN HCL [Concomitant]
  4. ITRACONAZOLE (ITRACONAZOLE) SYRUP [Concomitant]
  5. CIPROFLOXACIN (CIPROFLOXACIN LACTATE) [Concomitant]
  6. ONDANSETRON [Concomitant]
  7. CYCLIZINE (CYCLIZINE) [Concomitant]

REACTIONS (6)
  - ASPARTATE AMINOTRANSFERASE INCREASED [None]
  - HAEMATOCRIT DECREASED [None]
  - HAEMOGLOBIN DECREASED [None]
  - NEUTROPENIA [None]
  - PLATELET COUNT DECREASED [None]
  - RED BLOOD CELL COUNT DECREASED [None]
